FAERS Safety Report 15080453 (Version 2)
Quarter: 2020Q3

REPORT INFORMATION
  Report Type: Spontaneous
  Country: TR (occurrence: TR)
  Receive Date: 20180628
  Receipt Date: 20180706
  Transmission Date: 20201104
  Serious: Yes (Other)
  Sender: FDA-Public Use
  Company Number: TR-STRIDES ARCOLAB LIMITED-2018SP005287

PATIENT

DRUGS (5)
  1. AMIKACIN. [Suspect]
     Active Substance: AMIKACIN
     Indication: UROSEPSIS
     Dosage: UNKNOWN
     Route: 065
  2. CEFTRIAXONE. [Suspect]
     Active Substance: CEFTRIAXONE
     Indication: UROSEPSIS
     Dosage: UNK
     Route: 065
  3. VANCOMYCIN [Suspect]
     Active Substance: VANCOMYCIN
     Indication: UROSEPSIS
     Dosage: UNK
     Route: 065
  4. MEROPENEM. [Suspect]
     Active Substance: MEROPENEM
     Indication: UROSEPSIS
     Dosage: UNKNOWN
     Route: 065
  5. PIPERACILLIN AND TAZOBACTAM [Suspect]
     Active Substance: PIPERACILLIN SODIUM\TAZOBACTAM SODIUM
     Indication: UROSEPSIS
     Dosage: UNKNOWN
     Route: 065

REACTIONS (12)
  - Metabolic acidosis [Recovered/Resolved]
  - Candida infection [Recovered/Resolved]
  - Oedema peripheral [Recovered/Resolved]
  - Bladder obstruction [Recovered/Resolved]
  - Acute kidney injury [Recovered/Resolved]
  - Hydronephrosis [Recovered/Resolved]
  - Hyperuricaemia [Recovered/Resolved]
  - Hyponatraemia [Recovered/Resolved]
  - Hyperkalaemia [Recovered/Resolved]
  - Eyelid oedema [Recovered/Resolved]
  - Urine output decreased [Recovered/Resolved]
  - Dyspnoea [Recovered/Resolved]
